FAERS Safety Report 4318327-0 (Version None)
Quarter: 2004Q1

REPORT INFORMATION
  Report Type: 
  Country: None (occurrence: None)
  Receive Date: 20040317
  Receipt Date: 20040223
  Transmission Date: 20041129
  Serious: Yes (Hospitalization, Disabling)
  Sender: FDA-Public Use
  Company Number: WAES 0402USA01729

PATIENT
  Age: 48 Year
  Sex: Male
  Weight: 62 kg

DRUGS (1)
  1. STROMECTOL [Suspect]
     Route: 048
     Dates: start: 20031217, end: 20031217

REACTIONS (5)
  - ALBUMIN URINE PRESENT [None]
  - ASTHENIA [None]
  - DIFFICULTY IN WALKING [None]
  - INCOHERENT [None]
  - PYREXIA [None]
